FAERS Safety Report 8262933-8 (Version None)
Quarter: 2012Q2

REPORT INFORMATION
  Report Type: 
  Country: None (occurrence: None)
  Receive Date: 20120405
  Receipt Date: 20120330
  Transmission Date: 20120825
  Serious: Yes (Other)
  Sender: FDA-Public Use
  Company Number: FI-GLAXOSMITHKLINE-B0793460A

PATIENT
  Sex: Female

DRUGS (4)
  1. FLUTICASONE PROPIONATE/SALMETEROL [Suspect]
     Indication: ASTHMA
     Route: 055
     Dates: start: 20120211, end: 20120213
  2. PANTOPRAZOLE [Concomitant]
     Route: 065
  3. ERDOPECT [Concomitant]
     Route: 065
  4. VENTOLIN [Concomitant]
     Route: 065

REACTIONS (5)
  - DYSPNOEA [None]
  - THROAT IRRITATION [None]
  - TONGUE DISCOLOURATION [None]
  - TONGUE DISORDER [None]
  - MALAISE [None]
